FAERS Safety Report 6211843-6 (Version None)
Quarter: 2009Q2

REPORT INFORMATION
  Report Type: 
  Country: None (occurrence: None)
  Receive Date: 20090602
  Receipt Date: 20090521
  Transmission Date: 20091009
  Serious: Yes (Hospitalization)
  Sender: FDA-Public Use
  Company Number: KR-PFIZER INC-2009218616

PATIENT
  Age: 60 Year

DRUGS (3)
  1. CAMPTOSAR [Suspect]
     Indication: COLORECTAL CANCER METASTATIC
     Dosage: 340 MG
     Route: 042
     Dates: start: 20090406, end: 20090407
  2. CALCIUM LEVOFOLINATE [Suspect]
     Indication: COLORECTAL CANCER METASTATIC
     Dosage: 370 MG
     Route: 042
     Dates: start: 20090406, end: 20090407
  3. FLUOROURACIL [Suspect]
     Indication: COLORECTAL CANCER METASTATIC
     Dosage: 5150 MG
     Route: 042
     Dates: start: 20090406, end: 20090407

REACTIONS (1)
  - OPEN FRACTURE [None]
